FAERS Safety Report 13470320 (Version 1)
Quarter: 2017Q2

REPORT INFORMATION
  Report Type: Spontaneous
  Country: US (occurrence: US)
  Receive Date: 20170421
  Receipt Date: 20170421
  Transmission Date: 20170830
  Serious: Yes (Hospitalization)
  Sender: FDA-Public Use
  Company Number: None

PATIENT
  Age: 52 Year
  Sex: Female

DRUGS (7)
  1. PANTOPRAZOLE [Concomitant]
     Active Substance: PANTOPRAZOLE
  2. ATENOLOL. [Concomitant]
     Active Substance: ATENOLOL
  3. TRAMADOL. [Concomitant]
     Active Substance: TRAMADOL
  4. LONSURF [Suspect]
     Active Substance: TIPIRACIL HYDROCHLORIDE\TRIFLURIDINE
     Indication: CARCINOID TUMOUR
     Route: 048
     Dates: start: 20170203
  5. SENNA SMOOTH [Concomitant]
  6. NIFEDIPINE. [Concomitant]
     Active Substance: NIFEDIPINE
  7. ZOLPIDEM [Concomitant]
     Active Substance: ZOLPIDEM\ZOLPIDEM TARTRATE

REACTIONS (4)
  - Pain [None]
  - Constipation [None]
  - Asthenia [None]
  - Vomiting [None]
